FAERS Safety Report 7564726-3 (Version None)
Quarter: 2011Q2

REPORT INFORMATION
  Report Type: 
  Country: None (occurrence: None)
  Receive Date: 20110622
  Receipt Date: 20101101
  Transmission Date: 20111010
  Serious: Yes (Death)
  Sender: FDA-Public Use
  Company Number: US-MYLANLABS-2010S1018117

PATIENT
  Age: 60 Year
  Sex: Male

DRUGS (8)
  1. ARICEPT [Concomitant]
     Route: 048
  2. ADVAIR DISKUS 100/50 [Concomitant]
     Dosage: 100/50
  3. CLOZAPINE [Suspect]
     Dates: start: 20051101, end: 20100912
  4. CITALOPRAM HYDROBROMIDE [Concomitant]
     Route: 048
  5. SEROQUEL [Concomitant]
     Route: 048
  6. ALBUTEROL SULFATE AUTOHALER [Concomitant]
     Route: 055
  7. DEPAKOTE [Concomitant]
     Route: 048
  8. SPIRIVA [Concomitant]

REACTIONS (1)
  - LUNG NEOPLASM MALIGNANT [None]
